FAERS Safety Report 16638543 (Version 1)
Quarter: 2019Q3

REPORT INFORMATION
  Report Type: Spontaneous
  Country: US (occurrence: US)
  Receive Date: 20190614
  Receipt Date: 20190614
  Transmission Date: 20191004
  Serious: Yes (Death)
  Sender: FDA-Public Use
  Company Number: None

PATIENT
  Age: 64 Year

DRUGS (1)
  1. ABIRATERONE TAB [Suspect]
     Active Substance: ABIRATERONE
     Indication: PROSTATE CANCER
     Dates: start: 20180404

REACTIONS (1)
  - Death [None]

NARRATIVE: CASE EVENT DATE: 20190614
